FAERS Safety Report 6849906-4 (Version None)
Quarter: 2010Q3

REPORT INFORMATION
  Report Type: 
  Country: None (occurrence: None)
  Receive Date: 20100716
  Receipt Date: 20071008
  Transmission Date: 20110219
  Serious: No
  Sender: FDA-Public Use
  Company Number: US-PFIZER INC-2007085263

PATIENT
  Sex: Female
  Weight: 86.363 kg

DRUGS (8)
  1. CHANTIX [Suspect]
     Indication: SMOKING CESSATION THERAPY
     Dates: start: 20070101
  2. TRAZODONE HYDROCHLORIDE [Concomitant]
  3. ADVAIR DISKUS 100/50 [Concomitant]
  4. PAROXETINE [Concomitant]
  5. FEXOFENADINE [Concomitant]
  6. LISINOPRIL [Concomitant]
  7. ASTELIN [Concomitant]
  8. ALBUTEROL [Concomitant]

REACTIONS (4)
  - ANXIETY [None]
  - DRUG ADMINISTRATION ERROR [None]
  - INSOMNIA [None]
  - TREMOR [None]
